FAERS Safety Report 17552465 (Version 1)
Quarter: 2020Q1

REPORT INFORMATION
  Report Type: Report from Study
  Country: None (occurrence: US)
  Receive Date: 20200318
  Receipt Date: 20200318
  Transmission Date: 20200409
  Serious: Yes (Hospitalization, Other)
  Sender: FDA-Public Use
  Company Number: US-ABBVIE-19K-163-3168499-00

PATIENT
  Age: 18 Year
  Sex: Female
  Weight: 63.8 kg

DRUGS (31)
  1. VITAMIN D3 [Concomitant]
     Active Substance: CHOLECALCIFEROL
     Indication: PRODUCT USED FOR UNKNOWN INDICATION
     Route: 048
     Dates: start: 20190111
  2. TYLENOL [Concomitant]
     Active Substance: ACETAMINOPHEN
     Indication: PAIN
     Dosage: 650 MILLIGRAM TOTAL  SUSPENSION BY MOUTH EVERY SIX HOURS.
     Route: 048
  3. DIGOXIN. [Concomitant]
     Active Substance: DIGOXIN
     Indication: PRODUCT USED FOR UNKNOWN INDICATION
  4. PROBENECID. [Concomitant]
     Active Substance: PROBENECID
     Indication: PRODUCT USED FOR UNKNOWN INDICATION
     Dates: start: 20190916
  5. ZOFRAN [Concomitant]
     Active Substance: ONDANSETRON HYDROCHLORIDE
     Indication: PRODUCT USED FOR UNKNOWN INDICATION
     Dosage: DISINTEGRATING TABLET
  6. PREDNISONE. [Concomitant]
     Active Substance: PREDNISONE
     Indication: PRODUCT USED FOR UNKNOWN INDICATION
  7. GLYCOLAX [Concomitant]
     Active Substance: POLYETHYLENE GLYCOL 3350
     Indication: CONSTIPATION
     Dosage: TAKE 17 GRAM BY MOUTH. MIX ONE CAPFUL IN 8 OUNCES OF LIQUID AND DRINK ONCE A DAY
     Route: 048
  8. AMLODIPINE [Concomitant]
     Active Substance: AMLODIPINE BESYLATE
     Indication: PRODUCT USED FOR UNKNOWN INDICATION
  9. AMIODARONE [Suspect]
     Active Substance: AMIODARONE
     Indication: PRODUCT USED FOR UNKNOWN INDICATION
     Route: 065
  10. ADVIL [Concomitant]
     Active Substance: IBUPROFEN
     Indication: PAIN
     Dosage: 400 MILLIGRAM TOTAL SUSPENSION BY MOUTH EVERY SIX HOURS
     Route: 048
  11. NOVOLOG [Concomitant]
     Active Substance: INSULIN ASPART
     Indication: PRODUCT USED FOR UNKNOWN INDICATION
     Dosage: 100 UNIT/ML (3ML) PEN INJECTOR
  12. CEFEPIME [Concomitant]
     Active Substance: CEFEPIME HYDROCHLORIDE
     Indication: PRODUCT USED FOR UNKNOWN INDICATION
     Dates: start: 20190923, end: 20190925
  13. TRAZODONE [Concomitant]
     Active Substance: TRAZODONE HYDROCHLORIDE
     Indication: PRODUCT USED FOR UNKNOWN INDICATION
     Dosage: 10 MILLIGRAM PRN
  14. DESYREL [Concomitant]
     Active Substance: TRAZODONE HYDROCHLORIDE
     Indication: SLEEP DISORDER
     Dosage: 100 MILLIGRAM BY MOUTH AT BEDTIME AS NEEDED FOR SLEEP
     Route: 048
  15. CATHFLO ACTIVASE [Concomitant]
     Active Substance: ALTEPLASE
     Indication: PRODUCT USED FOR UNKNOWN INDICATION
  16. CEFTRIAXONE. [Concomitant]
     Active Substance: CEFTRIAXONE
     Dates: start: 20190925, end: 20190930
  17. HUMIRA [Suspect]
     Active Substance: ADALIMUMAB
     Indication: JUVENILE IDIOPATHIC ARTHRITIS
     Route: 058
     Dates: start: 20181101, end: 20190906
  18. CIDOFOVIR. [Suspect]
     Active Substance: CIDOFOVIR
     Indication: PRODUCT USED FOR UNKNOWN INDICATION
     Route: 065
     Dates: start: 20190916
  19. MELATONIN [Concomitant]
     Active Substance: MELATONIN
     Indication: PRODUCT USED FOR UNKNOWN INDICATION
     Dosage: RAPID DISSOLVE
     Route: 048
  20. POLYCITRA-K [Concomitant]
     Indication: PRODUCT USED FOR UNKNOWN INDICATION
     Dosage: 1;100-334MILIGRAM/5 ML SOLUTION
  21. EPOGEN [Concomitant]
     Active Substance: ERYTHROPOIETIN
     Indication: PRODUCT USED FOR UNKNOWN INDICATION
     Dosage: 10,000 UNIT/ML INJECTION
  22. CLONIDINE. [Concomitant]
     Active Substance: CLONIDINE
     Indication: PRODUCT USED FOR UNKNOWN INDICATION
     Dosage: 0.5 MILLIGRAM QHS
  23. HUMIRA [Suspect]
     Active Substance: ADALIMUMAB
     Route: 058
     Dates: start: 20191115
  24. AMIODARONE [Suspect]
     Active Substance: AMIODARONE
     Route: 065
  25. DELTASONE [Concomitant]
     Active Substance: PREDNISONE
     Indication: PRODUCT USED FOR UNKNOWN INDICATION
     Route: 048
  26. ELIQUIS [Concomitant]
     Active Substance: APIXABAN
     Indication: PRODUCT USED FOR UNKNOWN INDICATION
     Dosage: ONE TABLET
     Route: 048
  27. PERIDEX [Concomitant]
     Active Substance: CHLORHEXIDINE GLUCONATE
     Indication: PRODUCT USED FOR UNKNOWN INDICATION
     Dosage: 0.12% SOLUTION
  28. ORAPRED [Concomitant]
     Active Substance: PREDNISOLONE SODIUM PHOSPHATE
     Indication: PRODUCT USED FOR UNKNOWN INDICATION
  29. CEFTRIAXONE. [Concomitant]
     Active Substance: CEFTRIAXONE
     Indication: PRODUCT USED FOR UNKNOWN INDICATION
     Dates: start: 20190909, end: 20190916
  30. NORVASC [Concomitant]
     Active Substance: AMLODIPINE BESYLATE
     Indication: PRODUCT USED FOR UNKNOWN INDICATION
     Route: 048
  31. ROXICODONE [Concomitant]
     Active Substance: OXYCODONE HYDROCHLORIDE
     Indication: PRODUCT USED FOR UNKNOWN INDICATION

REACTIONS (60)
  - Osmotic demyelination syndrome [Unknown]
  - Septic shock [Unknown]
  - Mobility decreased [Unknown]
  - Atrial flutter [Unknown]
  - Myocardial strain [Unknown]
  - Anaemia [Unknown]
  - Hyponatraemia [Unknown]
  - Rheumatoid factor negative [Unknown]
  - Pneumonia adenoviral [Unknown]
  - Osteoporosis [Unknown]
  - Bradycardia [Unknown]
  - Hyperchloraemia [Unknown]
  - Hyperglycaemia [Recovered/Resolved]
  - Glycosuria [Unknown]
  - Hypophosphataemia [Unknown]
  - Cough [Unknown]
  - Haemophagocytic lymphohistiocytosis [Unknown]
  - Deep vein thrombosis [Unknown]
  - Gait disturbance [Unknown]
  - Blood osmolarity abnormal [Unknown]
  - Vitamin D deficiency [Unknown]
  - Hyponatraemia [Recovered/Resolved]
  - Acute respiratory distress syndrome [Not Recovered/Not Resolved]
  - Septo-optic dysplasia [Unknown]
  - Heart disease congenital [Unknown]
  - Acute kidney injury [Unknown]
  - Limb asymmetry [Unknown]
  - Congenital spinal cord anomaly [Unknown]
  - Polyuria [Unknown]
  - Blood urea increased [Unknown]
  - Blood glucose increased [Unknown]
  - Chronic kidney disease [Unknown]
  - Bone disorder [Unknown]
  - Cleft lip repair [Unknown]
  - Juvenile idiopathic arthritis [Unknown]
  - Oligodipsia [Unknown]
  - Obesity [Unknown]
  - Hypotension [Unknown]
  - Loss of personal independence in daily activities [Unknown]
  - Hypokalaemia [Unknown]
  - Tachyarrhythmia [Unknown]
  - Renal hypoplasia [Unknown]
  - Body height below normal [Unknown]
  - Glycosylated haemoglobin increased [Unknown]
  - Nephrogenic anaemia [Unknown]
  - Psychophysiologic insomnia [Unknown]
  - Asthenia [Unknown]
  - Respiratory failure [Unknown]
  - Developmental delay [Unknown]
  - Hyperosmolar state [Unknown]
  - Immunosuppression [Unknown]
  - Metabolic acidosis [Unknown]
  - Secondary hypertension [Unknown]
  - Unevaluable event [Unknown]
  - Hypernatraemia [Recovered/Resolved]
  - Growth hormone deficiency [Unknown]
  - Mineral deficiency [Unknown]
  - Constipation [Unknown]
  - Cognitive disorder [Unknown]
  - Dysphagia [Unknown]

NARRATIVE: CASE EVENT DATE: 2019
